FAERS Safety Report 6746853-3 (Version None)
Quarter: 2010Q2

REPORT INFORMATION
  Report Type: 
  Country: None (occurrence: None)
  Receive Date: 20100528
  Receipt Date: 20100521
  Transmission Date: 20101027
  Serious: Yes (Other)
  Sender: FDA-Public Use
  Company Number: AU-ROCHE-702946

PATIENT
  Sex: Female

DRUGS (9)
  1. ACTEMRA [Suspect]
     Indication: RHEUMATOID ARTHRITIS
     Dosage: FORM: INFUSION
     Route: 065
     Dates: start: 20091101
  2. PREDNISONE TAB [Concomitant]
  3. ENDEP [Concomitant]
  4. COVERSYL [Concomitant]
  5. LEXAPRO [Concomitant]
  6. ARAVA [Concomitant]
  7. DICLOFENAC [Concomitant]
  8. PANADOL FORTE [Concomitant]
  9. ACETAMINOPHEN W/ CODEINE [Concomitant]

REACTIONS (1)
  - EPISTAXIS [None]
